FAERS Safety Report 17875682 (Version 2)
Quarter: 2020Q3

REPORT INFORMATION
  Report Type: Spontaneous
  Country: BR (occurrence: BR)
  Receive Date: 20200609
  Receipt Date: 20200810
  Transmission Date: 20201103
  Serious: Yes (Other)
  Sender: FDA-Public Use
  Company Number: NVSC2020BR159655

PATIENT
  Sex: Female

DRUGS (1)
  1. AZORGA SUSPENSION [Suspect]
     Active Substance: BRINZOLAMIDE\TIMOLOL MALEATE
     Indication: PRODUCT USED FOR UNKNOWN INDICATION
     Dosage: UNK(STARTED MORE THAN 2 YEARS AGO AND ARE ONGOING)
     Route: 065

REACTIONS (1)
  - Pulmonary vein occlusion [Not Recovered/Not Resolved]
